FAERS Safety Report 20844867 (Version 2)
Quarter: 2022Q4

REPORT INFORMATION
  Report Type: Report from Study
  Country: CA (occurrence: CA)
  Receive Date: 20220518
  Receipt Date: 20221208
  Transmission Date: 20230113
  Serious: Yes (Other)
  Sender: FDA-Public Use
  Company Number: CA-NOVARTISPH-NVSC2022CA111958

PATIENT
  Sex: Male

DRUGS (3)
  1. PIRFENIDONE [Suspect]
     Active Substance: PIRFENIDONE
     Indication: Interstitial lung disease
     Dosage: UNK
  2. PIRFENIDONE [Suspect]
     Active Substance: PIRFENIDONE
     Indication: Pulmonary fibrosis
  3. ALBUTEROL [Concomitant]
     Active Substance: ALBUTEROL
     Indication: Product used for unknown indication
     Dosage: 400 MCG
     Route: 065

REACTIONS (11)
  - Bronchiectasis [Unknown]
  - Interstitial lung disease [Unknown]
  - Pulmonary fibrosis [Unknown]
  - Disease progression [Unknown]
  - Pulmonary mass [Unknown]
  - Atelectasis [Unknown]
  - Lung cyst [Unknown]
  - Lung diffusion test abnormal [Unknown]
  - Renal cyst [Unknown]
  - Arteriosclerosis [Unknown]
  - Aortic valve calcification [Unknown]
